FAERS Safety Report 6172420-9 (Version None)
Quarter: 2009Q2

REPORT INFORMATION
  Report Type: 
  Country: None (occurrence: None)
  Receive Date: 20090429
  Receipt Date: 20090417
  Transmission Date: 20091009
  Serious: Yes (Hospitalization, Other)
  Sender: FDA-Public Use
  Company Number: NZ-ELI_LILLY_AND_COMPANY-NZ200904003632

PATIENT
  Age: 50 Year
  Sex: Male
  Weight: 118 kg

DRUGS (3)
  1. ZYPREXA [Suspect]
     Indication: SCHIZOPHRENIA
     Dosage: 10 MG, DAILY (1/D)
     Route: 048
     Dates: end: 20080101
  2. ZYPREXA [Suspect]
     Dosage: 30 MG, DAILY (1/D)
     Route: 048
     Dates: start: 20080101, end: 20080901
  3. ZYPREXA [Suspect]
     Dosage: 20 MG, DAILY (1/D)
     Route: 048
     Dates: start: 20080901

REACTIONS (3)
  - DISEASE RECURRENCE [None]
  - OVERDOSE [None]
  - WEIGHT INCREASED [None]
